FAERS Safety Report 10156250 (Version 2)
Quarter: 2014Q2

REPORT INFORMATION
  Report Type: Not Available
  Country: FR (occurrence: FR)
  Receive Date: 20140507
  Receipt Date: 20140623
  Transmission Date: 20141212
  Serious: Yes (Hospitalization)
  Sender: FDA-Public Use
  Company Number: FR-BEH-2014042241

PATIENT
  Age: 74 Year
  Sex: Male

DRUGS (10)
  1. PRIVIGEN [Suspect]
     Route: 042
     Dates: start: 20140206, end: 20140206
  2. PRIVIGEN [Suspect]
     Route: 042
     Dates: start: 20140207, end: 20140207
  3. PRIVIGEN [Suspect]
     Route: 042
     Dates: start: 20140208, end: 20140208
  4. PRIVIGEN [Suspect]
     Route: 042
     Dates: start: 20140209, end: 20140209
  5. PRIVIGEN [Suspect]
     Route: 042
     Dates: start: 20140210, end: 20140210
  6. LOVENOX [Concomitant]
     Route: 058
     Dates: start: 20140206, end: 20140331
  7. AMLODIPINE ARROW [Concomitant]
     Route: 048
     Dates: start: 20140213, end: 20140220
  8. INEXIUM [Concomitant]
     Dosage: START DATE ??-FEB-2014
     Route: 048
     Dates: end: 20140220
  9. TOPALGIC [Concomitant]
     Dosage: START DATE ??-FEB-2014
     Route: 048
     Dates: end: 20140217
  10. LOXEN [Concomitant]

REACTIONS (10)
  - Toxic skin eruption [Not Recovered/Not Resolved]
  - Rash scarlatiniform [Not Recovered/Not Resolved]
  - Rash maculo-papular [Not Recovered/Not Resolved]
  - Eczema [Not Recovered/Not Resolved]
  - Erythema [Not Recovered/Not Resolved]
  - Erythrodermic psoriasis [Not Recovered/Not Resolved]
  - Pruritus [Not Recovered/Not Resolved]
  - Skin exfoliation [Not Recovered/Not Resolved]
  - Palmoplantar keratoderma [Not Recovered/Not Resolved]
  - Nail disorder [Not Recovered/Not Resolved]
